FAERS Safety Report 8628132 (Version 4)
Quarter: 2017Q3

REPORT INFORMATION
  Report Type: Spontaneous
  Country: GB (occurrence: GB)
  Receive Date: 20120621
  Receipt Date: 20170801
  Transmission Date: 20171128
  Serious: Yes (Other)
  Sender: FDA-Public Use
  Company Number: GB-PFIZER INC-2012146964

PATIENT
  Age: 22 Year
  Sex: Female

DRUGS (4)
  1. MISOPROSTOL. [Suspect]
     Active Substance: MISOPROSTOL
     Indication: ABORTION INDUCED
     Dosage: 400 UG, 1X/DAY
     Route: 067
     Dates: start: 20010227, end: 20010227
  2. MIFEGYNE [Suspect]
     Active Substance: MIFEPRISTONE
     Indication: ABORTION INDUCED
     Dosage: 200 MG, 1X/DAY
     Route: 048
     Dates: start: 20010225, end: 20010225
  3. METRONIDAZOLE. [Concomitant]
     Active Substance: METRONIDAZOLE
     Dosage: 1 G, UNK
     Dates: start: 20010227, end: 20010227
  4. DEPO-PROVERA [Concomitant]
     Active Substance: MEDROXYPROGESTERONE ACETATE
     Dosage: 150 MG, UNK (TOTAL DOSE)
     Dates: start: 20010227, end: 20010227

REACTIONS (7)
  - Incorrect dose administered [Unknown]
  - Foetal death [Not Recovered/Not Resolved]
  - Drug ineffective for unapproved indication [Unknown]
  - Induced abortion failed [Unknown]
  - Premature separation of placenta [Unknown]
  - Drug administration error [Unknown]
  - Incorrect route of drug administration [Unknown]

NARRATIVE: CASE EVENT DATE: 2001
